FAERS Safety Report 5148348-X (Version None)
Quarter: 2006Q4

REPORT INFORMATION
  Report Type: 
  Country: None (occurrence: None)
  Receive Date: 20061106
  Receipt Date: 20061024
  Transmission Date: 20070319
  Serious: Yes (Hospitalization)
  Sender: FDA-Public Use
  Company Number: 2006130982

PATIENT
  Age: 51 Year
  Sex: Male

DRUGS (1)
  1. MEDROL [Suspect]

REACTIONS (1)
  - DIVERTICULITIS [None]
